FAERS Safety Report 7955400-X (Version None)
Quarter: 2011Q4

REPORT INFORMATION
  Report Type: 
  Country: None (occurrence: None)
  Receive Date: 20111202
  Receipt Date: 20111130
  Transmission Date: 20120403
  Serious: No
  Sender: FDA-Public Use
  Company Number: US-B.I. PHARMACEUTICALS,INC./RIDGEFIELD-2011-BP-27269BP

PATIENT
  Sex: Male

DRUGS (3)
  1. MORFORMIN [Concomitant]
  2. TRADJENTA [Suspect]
     Dosage: 5 MG
     Dates: start: 20111017, end: 20111028
  3. MOCFORMIN [Concomitant]

REACTIONS (1)
  - INTERNATIONAL NORMALISED RATIO INCREASED [None]
